FAERS Safety Report 6527642-1 (Version None)
Quarter: 2010Q1

REPORT INFORMATION
  Report Type: 
  Country: None (occurrence: None)
  Receive Date: 20100105
  Receipt Date: 20091231
  Transmission Date: 20100710
  Serious: Yes (Death)
  Sender: FDA-Public Use
  Company Number: US-GILEAD-2010-0026266

PATIENT
  Sex: Female

DRUGS (20)
  1. LETAIRIS [Suspect]
     Indication: PULMONARY ARTERIAL HYPERTENSION
  2. WARFARIN SODIUM [Concomitant]
  3. COREG [Concomitant]
  4. METOPROLOL TARTRATE [Concomitant]
  5. SOTALOL AF [Concomitant]
  6. FUROSEMIDE [Concomitant]
  7. METOLAZONE [Concomitant]
  8. SPIRONOLACTONE [Concomitant]
  9. PLAVIX [Concomitant]
  10. PLETAL [Concomitant]
  11. SEROQUEL [Concomitant]
  12. ESTRADIOL [Concomitant]
  13. GLIMEPIRIDE [Concomitant]
  14. LEXAPRO [Concomitant]
  15. KLONOPIN [Concomitant]
  16. JANUVIA [Concomitant]
  17. LORAZEPAM [Concomitant]
  18. LEVOTHYROXINE SODIUM [Concomitant]
  19. PRAVASTATIN SODIUM [Concomitant]
  20. IRON [Concomitant]

REACTIONS (1)
  - DEATH [None]
